FAERS Safety Report 13297965 (Version 1)
Quarter: 2017Q1

REPORT INFORMATION
  Report Type: Report from Study
  Country: FR (occurrence: FR)
  Receive Date: 20170306
  Receipt Date: 20170306
  Transmission Date: 20170428
  Serious: Yes (Other)
  Sender: FDA-Public Use
  Company Number: FR-AUROBINDO-AUR-APL-2017-30714

PATIENT
  Age: 44 Year
  Sex: Male

DRUGS (5)
  1. PARACETAMOL/CODEINE [Suspect]
     Active Substance: ACETAMINOPHEN\CODEINE PHOSPHATE
     Indication: PRODUCT USED FOR UNKNOWN INDICATION
     Dosage: 24 TABLETS/DAY
     Route: 065
  2. PREGABALIN. [Suspect]
     Active Substance: PREGABALIN
     Indication: PRODUCT USED FOR UNKNOWN INDICATION
     Dosage: 18 CAPSULES/DAY
     Route: 065
  3. ALPRAZOLAM TABLETS [Suspect]
     Active Substance: ALPRAZOLAM
     Indication: PRODUCT USED FOR UNKNOWN INDICATION
     Dosage: 12 TABLETS  PER DAY
     Route: 065
  4. ZOLPIDEM [Suspect]
     Active Substance: ZOLPIDEM\ZOLPIDEM TARTRATE
     Indication: PRODUCT USED FOR UNKNOWN INDICATION
     Dosage: 30 TABLET DAILY PER DAY
     Route: 065
  5. TETRAZEPAM [Suspect]
     Active Substance: TETRAZEPAM
     Indication: PRODUCT USED FOR UNKNOWN INDICATION
     Dosage: 18 TABLETS/DAY
     Route: 065

REACTIONS (5)
  - Drug abuse [Unknown]
  - Deafness [Unknown]
  - Somnolence [Unknown]
  - Alopecia [Unknown]
  - Drug dependence [Unknown]
